FAERS Safety Report 19273007 (Version 2)
Quarter: 2021Q3

REPORT INFORMATION
  Report Type: Spontaneous
  Country: US (occurrence: US)
  Receive Date: 20210519
  Receipt Date: 20210703
  Transmission Date: 20211014
  Serious: Yes (Other)
  Sender: FDA-Public Use
  Company Number: US-JNJFOC-20210521100

PATIENT
  Age: 5 Decade
  Sex: Female

DRUGS (13)
  1. TRAMADOL. [Concomitant]
     Active Substance: TRAMADOL
     Indication: PAIN
  2. ELMIRON [Suspect]
     Active Substance: PENTOSAN POLYSULFATE SODIUM
     Indication: CYSTITIS INTERSTITIAL
     Dosage: INITIALLY TOOK 100 MG OF ONCE PER DAY. AT SOME POINT, SHE WAS INSTRUCTED TO TAKE IT TWICE PER DAY.
     Route: 048
     Dates: start: 1996, end: 2020
  3. ELMIRON [Suspect]
     Active Substance: PENTOSAN POLYSULFATE SODIUM
     Dosage: INITIALLY TOOK 100 MG OF ONCE PER DAY. AT SOME POINT, SHE WAS INSTRUCTED TO TAKE IT TWICE PER DAY.
     Route: 048
     Dates: start: 2009
  4. METHIMAZOLE. [Concomitant]
     Active Substance: METHIMAZOLE
     Indication: HYPERTHYROIDISM
     Dates: start: 201902
  5. ELMIRON [Suspect]
     Active Substance: PENTOSAN POLYSULFATE SODIUM
     Dosage: INITIALLY TOOK 100 MG OF ONCE PER DAY. AT SOME POINT, SHE WAS INSTRUCTED TO TAKE IT TWICE PER DAY.
     Route: 048
     Dates: end: 1997
  6. VITAMIN D [ERGOCALCIFEROL] [Concomitant]
     Active Substance: ERGOCALCIFEROL
     Indication: CHRONIC KIDNEY DISEASE
  7. TRIMETHOPRIM. [Concomitant]
     Active Substance: TRIMETHOPRIM
     Indication: INFECTION
  8. RESTASIS [Concomitant]
     Active Substance: CYCLOSPORINE
     Indication: EYE PRURITUS
     Dates: start: 2021
  9. ELMIRON [Suspect]
     Active Substance: PENTOSAN POLYSULFATE SODIUM
     Dosage: INITIALLY TOOK 100 MG OF ONCE PER DAY. AT SOME POINT, SHE WAS INSTRUCTED TO TAKE IT TWICE PER DAY.
     Route: 048
     Dates: start: 202001, end: 202010
  10. RESTASIS [Concomitant]
     Active Substance: CYCLOSPORINE
     Indication: DRY EYE
  11. ELMIRON [Suspect]
     Active Substance: PENTOSAN POLYSULFATE SODIUM
     Dosage: INITIALLY TOOK 100 MG OF ONCE PER DAY. AT SOME POINT, SHE WAS INSTRUCTED TO TAKE IT TWICE PER DAY.
     Route: 048
     Dates: start: 1998
  12. ATENOLOL. [Concomitant]
     Active Substance: ATENOLOL
     Indication: HYPERTENSION
  13. METHOCARBAMOL. [Concomitant]
     Active Substance: METHOCARBAMOL
     Indication: MYALGIA
     Dates: start: 2020

REACTIONS (4)
  - Retinal degeneration [Unknown]
  - Off label use [Unknown]
  - Maculopathy [Unknown]
  - Product use issue [Unknown]

NARRATIVE: CASE EVENT DATE: 1996
